FAERS Safety Report 6059578-7 (Version None)
Quarter: 2009Q1

REPORT INFORMATION
  Report Type: 
  Country: None (occurrence: None)
  Receive Date: 20090127
  Receipt Date: 20090127
  Transmission Date: 20090719
  Serious: No
  Sender: FDA-Public Use
  Company Number: None

PATIENT
  Age: 57 Year
  Sex: Female
  Weight: 121.1104 kg

DRUGS (4)
  1. CIPRO [Suspect]
     Indication: BACTERIAL INFECTION
     Dates: start: 20080228, end: 20080308
  2. CIPRO [Suspect]
     Indication: FURUNCLE
     Dates: start: 20080228, end: 20080308
  3. CIPRO [Suspect]
     Indication: BACTERIAL INFECTION
     Dates: start: 20080619, end: 20080619
  4. CIPRO [Suspect]
     Indication: FURUNCLE
     Dates: start: 20080619, end: 20080619

REACTIONS (15)
  - ACTIVITIES OF DAILY LIVING IMPAIRED [None]
  - ANXIETY [None]
  - ARTHRALGIA [None]
  - BONE PAIN [None]
  - DEPRESSION [None]
  - DIARRHOEA [None]
  - EXOSTOSIS [None]
  - FUNGAL INFECTION [None]
  - FURUNCLE [None]
  - GASTROINTESTINAL DISORDER [None]
  - GASTROINTESTINAL PAIN [None]
  - GRIP STRENGTH DECREASED [None]
  - IMMOBILE [None]
  - INSOMNIA [None]
  - PAIN IN EXTREMITY [None]
